FAERS Safety Report 8139152-9 (Version None)
Quarter: 2012Q1

REPORT INFORMATION
  Report Type: 
  Country: None (occurrence: None)
  Receive Date: 20120215
  Receipt Date: 20120208
  Transmission Date: 20120608
  Serious: Yes (Hospitalization)
  Sender: FDA-Public Use
  Company Number: US-BAYER-2011-121058

PATIENT
  Age: 18 Year
  Sex: Female

DRUGS (9)
  1. CYCLOBENZAPRINE [Concomitant]
     Dosage: 10 MG, UNK
     Dates: start: 20100901
  2. DIFFERIN [Concomitant]
  3. NSAID'S [Concomitant]
     Dosage: UNK UNK, PRN
     Dates: start: 20101101
  4. METOCLOPRAMIDE [Concomitant]
     Indication: ANXIETY
     Dosage: 25 MG, UNK
     Dates: start: 20101102
  5. YAZ [Suspect]
     Dosage: UNK
     Dates: start: 20100301, end: 20101001
  6. ACCUTANE [Concomitant]
     Dosage: 40 MG, UNK
     Dates: start: 20100601, end: 20101101
  7. YASMIN [Suspect]
     Dosage: UNK
     Dates: start: 20100301, end: 20101001
  8. MEDROL [Concomitant]
  9. DROSPIRENONE AND ETHINYL ESTRADIOL [Suspect]
     Dosage: UNK
     Dates: start: 20100301, end: 20101001

REACTIONS (7)
  - PULMONARY EMBOLISM [None]
  - PAIN [None]
  - EMOTIONAL DISTRESS [None]
  - INJURY [None]
  - GENERAL PHYSICAL HEALTH DETERIORATION [None]
  - DEEP VEIN THROMBOSIS [None]
  - ANXIETY [None]
